FAERS Safety Report 14586157 (Version 5)
Quarter: 2022Q1

REPORT INFORMATION
  Report Type: Spontaneous
  Country: ES (occurrence: ES)
  Receive Date: 20180301
  Receipt Date: 20220118
  Transmission Date: 20220424
  Serious: Yes (Hospitalization, Disabling, Other)
  Sender: FDA-Public Use
  Company Number: ES-GRUNENTHAL-2018-15794

PATIENT
  Age: 81 Year
  Sex: Female

DRUGS (10)
  1. CITALOPRAM [Interacting]
     Active Substance: CITALOPRAM HYDROBROMIDE
     Indication: Major depression
     Dosage: 20 MILLIGRAM, TWO TIMES A DAY (40 MILLIGRAM)
     Route: 065
     Dates: start: 201505, end: 201507
  2. TOLTERODINE [Suspect]
     Active Substance: TOLTERODINE
     Indication: Product used for unknown indication
     Dosage: 2 MILLIGRAM, ONCE A DAY
     Route: 065
     Dates: start: 201506
  3. TRAMADOL [Suspect]
     Active Substance: TRAMADOL
     Indication: Product used for unknown indication
     Dosage: 50 MILLIGRAM, ONCE A DAY
     Route: 065
     Dates: start: 201506
  4. TRAMADOL HYDROCHLORIDE [Interacting]
     Active Substance: TRAMADOL HYDROCHLORIDE
     Indication: Pain
     Dosage: 50 MILLIGRAM, 3 TIMES A DAY
     Route: 048
     Dates: start: 201409, end: 20150707
  5. OMEPRAZOLE [Concomitant]
     Active Substance: OMEPRAZOLE
     Indication: Product used for unknown indication
     Dosage: 20 MILLIGRAM, TWO TIMES A DAY
     Route: 065
     Dates: start: 201309
  6. MEGESTROL [Concomitant]
     Active Substance: MEGESTROL
     Indication: Product used for unknown indication
     Dosage: 160 MILLIGRAM, TWO TIMES A DAY
     Route: 065
     Dates: start: 201504
  7. LORMETAZEPAM [Concomitant]
     Active Substance: LORMETAZEPAM
     Indication: Product used for unknown indication
     Dosage: 2 MILLIGRAM, ONCE A DAY
     Route: 065
     Dates: start: 201505
  8. LATANOPROST [Concomitant]
     Active Substance: LATANOPROST
     Indication: Cerebrovascular accident
     Dosage: 3 DOSAGE FORM, ONCE A DAY
     Route: 047
     Dates: start: 201310
  9. DICLOFENAC [Concomitant]
     Active Substance: DICLOFENAC
     Indication: Product used for unknown indication
     Dosage: 50 MILLIGRAM, 3 TIMES A DAY
     Route: 065
     Dates: start: 201309, end: 201505
  10. LEVETIRACETAM [Concomitant]
     Active Substance: LEVETIRACETAM
     Indication: Serotonin syndrome
     Dosage: UNK
     Route: 065

REACTIONS (9)
  - Serotonin syndrome [Recovered/Resolved with Sequelae]
  - Drug interaction [Recovered/Resolved]
  - Depressed level of consciousness [Unknown]
  - Myoclonus [Unknown]
  - Body temperature increased [Unknown]
  - Hypertension [Unknown]
  - Tachycardia [Unknown]
  - Disorientation [Unknown]
  - Hyperthermia [Recovered/Resolved with Sequelae]

NARRATIVE: CASE EVENT DATE: 20150701
